FAERS Safety Report 24017253 (Version 1)
Quarter: 2024Q2

REPORT INFORMATION
  Report Type: Report from Study
  Country: US (occurrence: US)
  Receive Date: 20240627
  Receipt Date: 20240627
  Transmission Date: 20240717
  Serious: Yes (Hospitalization)
  Sender: FDA-Public Use
  Company Number: US-JAZZ PHARMACEUTICALS-2024-US-009742

PATIENT
  Sex: Female

DRUGS (1)
  1. EPIDIOLEX [Suspect]
     Active Substance: CANNABIDIOL
     Indication: Epilepsy
     Dosage: TAKE 0.75 ML VIA G-TUBE TWICE A DAY FOR 1 WEEK, THEN 1.5 ML TWICE A DAY FOR 1 WEEK, THEN 2.3 ML TWIC
     Route: 048

REACTIONS (1)
  - Hospitalisation [Unknown]
